FAERS Safety Report 12642953 (Version 1)
Quarter: 2016Q3

REPORT INFORMATION
  Report Type: Spontaneous
  Country: US (occurrence: US)
  Receive Date: 20160811
  Receipt Date: 20160811
  Transmission Date: 20161109
  Serious: Yes (Life-Threatening, Hospitalization, Other)
  Sender: FDA-Public Use
  Company Number: US-BRISTOL-MYERS SQUIBB COMPANY-BMS-2016-063535

PATIENT
  Age: 57 Year
  Sex: Female

DRUGS (1)
  1. WARFARIN SODIUM. [Suspect]
     Active Substance: WARFARIN SODIUM
     Indication: PRODUCT USED FOR UNKNOWN INDICATION
     Dosage: 5 MG, QD
     Route: 065

REACTIONS (6)
  - Pneumonia [Unknown]
  - Adrenal haemorrhage [Unknown]
  - Acute kidney injury [Unknown]
  - Sepsis [Unknown]
  - Anticoagulation drug level below therapeutic [Unknown]
  - Acute respiratory failure [Unknown]
